FAERS Safety Report 6638426-8 (Version None)
Quarter: 2010Q1

REPORT INFORMATION
  Report Type: 
  Country: None (occurrence: None)
  Receive Date: 20100317
  Receipt Date: 20100309
  Transmission Date: 20100710
  Serious: Yes (Other)
  Sender: FDA-Public Use
  Company Number: US-BAXTER-2010BH003012

PATIENT
  Age: 50 Year
  Sex: Male
  Weight: 110 kg

DRUGS (5)
  1. ARALAST [Suspect]
     Indication: ALPHA-1 ANTI-TRYPSIN DEFICIENCY
     Route: 042
  2. SEREVENT [Concomitant]
     Route: 055
  3. QVAR 40 [Concomitant]
     Route: 055
  4. PROVAR [Concomitant]
     Route: 055
  5. URSODIOL [Concomitant]
     Route: 048

REACTIONS (4)
  - BACTERAEMIA [None]
  - CHILLS [None]
  - MYCOBACTERIUM FORTUITUM INFECTION [None]
  - PYREXIA [None]
